FAERS Safety Report 21697290 (Version 1)
Quarter: 2022Q4

REPORT INFORMATION
  Report Type: Spontaneous
  Country: US (occurrence: US)
  Receive Date: 20221208
  Receipt Date: 20221208
  Transmission Date: 20230112
  Serious: Yes (Other)
  Sender: FDA-Public Use
  Company Number: US-AMGEN-USASP2022210693

PATIENT
  Age: 69 Year
  Sex: Male

DRUGS (1)
  1. RITUXIMAB [Suspect]
     Active Substance: RITUXIMAB
     Indication: Anti-myelin-associated glycoprotein associated polyneuropathy
     Dosage: UNK, Q2MO
     Route: 065

REACTIONS (2)
  - Anti-myelin-associated glycoprotein associated polyneuropathy [Unknown]
  - Off label use [Unknown]
